FAERS Safety Report 6175237-4 (Version None)
Quarter: 2009Q2

REPORT INFORMATION
  Report Type: 
  Country: None (occurrence: None)
  Receive Date: 20090430
  Receipt Date: 20090129
  Transmission Date: 20091009
  Serious: Yes (Life-Threatening, Hospitalization)
  Sender: FDA-Public Use
  Company Number: US-ASTRAZENECA-2009UW02677

PATIENT
  Age: 61 Year
  Sex: Male
  Weight: 106.6 kg

DRUGS (2)
  1. NEXIUM [Suspect]
     Route: 048
  2. ATARAX [Concomitant]

REACTIONS (1)
  - GASTROINTESTINAL HAEMORRHAGE [None]
